FAERS Safety Report 9858298 (Version 1)
Quarter: 2014Q1

REPORT INFORMATION
  Report Type: Spontaneous
  Country: FR (occurrence: FR)
  Receive Date: 20140131
  Receipt Date: 20140131
  Transmission Date: 20141002
  Serious: Yes (Other)
  Sender: FDA-Public Use
  Company Number: FR-BEH-2014040448

PATIENT
  Age: 65 Year
  Sex: Male

DRUGS (1)
  1. INTRAVENOUS IMMUNOGLOBULIN [Suspect]
     Indication: PERIPHERAL SENSORY NEUROPATHY
     Route: 042

REACTIONS (1)
  - Drug effect incomplete [Recovered/Resolved]
